FAERS Safety Report 25455821 (Version 3)
Quarter: 2025Q3

REPORT INFORMATION
  Report Type: Spontaneous
  Country: EU (occurrence: EU)
  Receive Date: 20250619
  Receipt Date: 20250819
  Transmission Date: 20251021
  Serious: Yes (Hospitalization, Other)
  Sender: ABBVIE
  Company Number: EU-JNJFOC-20250615736

PATIENT
  Age: 73 Year
  Sex: Male

DRUGS (3)
  1. IBRUTINIB [Suspect]
     Active Substance: IBRUTINIB
     Indication: Chronic lymphocytic leukaemia
     Route: 048
     Dates: start: 202402, end: 202504
  2. VENETOCLAX [Suspect]
     Active Substance: VENETOCLAX
     Indication: Chronic lymphocytic leukaemia
     Route: 048
  3. VENETOCLAX [Suspect]
     Active Substance: VENETOCLAX
     Indication: Chronic lymphocytic leukaemia
     Route: 048

REACTIONS (7)
  - Joint swelling [Recovering/Resolving]
  - Synovial cyst [Recovering/Resolving]
  - White blood cell count increased [Unknown]
  - Diarrhoea [Unknown]
  - Pyrexia [Unknown]
  - Neutropenia [Unknown]
  - Erysipelas [Unknown]

NARRATIVE: CASE EVENT DATE: 20250301
